FAERS Safety Report 6678794-4 (Version None)
Quarter: 2010Q2

REPORT INFORMATION
  Report Type: 
  Country: None (occurrence: None)
  Receive Date: 20100402
  Receipt Date: 20090616
  Transmission Date: 20101027
  Serious: No
  Sender: FDA-Public Use
  Company Number: 2009-00529

PATIENT
  Age: 40 Year
  Sex: Male
  Weight: 61.2356 kg

DRUGS (2)
  1. ZICAM COLDE REMEDY NASAL GEL [Suspect]
     Dosage: 2 YEARS AGO -
  2. TRICOR [Concomitant]

REACTIONS (1)
  - ANOSMIA [None]
